FAERS Safety Report 12412758 (Version 1)
Quarter: 2016Q2

REPORT INFORMATION
  Report Type: Spontaneous
  Country: US (occurrence: US)
  Receive Date: 20160527
  Receipt Date: 20160527
  Transmission Date: 20160815
  Serious: No
  Sender: FDA-Public Use
  Company Number: US-PFIZER INC-2016264353

PATIENT
  Sex: Female

DRUGS (2)
  1. ZOLOFT [Suspect]
     Active Substance: SERTRALINE HYDROCHLORIDE
     Indication: POST-TRAUMATIC STRESS DISORDER
     Dosage: 100MG, ONCE A DAY, BY MOUTH, TABLET
     Route: 048
     Dates: start: 201602, end: 201603
  2. ZOLOFT [Suspect]
     Active Substance: SERTRALINE HYDROCHLORIDE
     Dosage: 100MG, ONCE A DAY, BY MOUTH, TABLET
     Route: 048
     Dates: start: 201603, end: 201605

REACTIONS (4)
  - Disease recurrence [Not Recovered/Not Resolved]
  - Intentional product misuse [Unknown]
  - Nightmare [Not Recovered/Not Resolved]
  - Drug ineffective [Unknown]
